FAERS Safety Report 10372075 (Version 2)
Quarter: 2014Q3

REPORT INFORMATION
  Report Type: Report from Study
  Country: US (occurrence: US)
  Receive Date: 20140808
  Receipt Date: 20140808
  Transmission Date: 20150326
  Serious: Yes (Other)
  Sender: FDA-Public Use
  Company Number: US-EXELIXIS-CABO-14004150

PATIENT
  Sex: Female

DRUGS (12)
  1. MARINOL [Concomitant]
     Active Substance: DRONABINOL
  2. LEVOTHYROXINE [Concomitant]
     Active Substance: LEVOTHYROXINE
  3. CABOZANTINIB [Suspect]
     Active Substance: CABOZANTINIB
     Indication: ALVEOLAR SOFT PART SARCOMA METASTATIC
     Dosage: 140 MG, QD
     Route: 048
     Dates: start: 20140308, end: 20140408
  4. PROMETHAZINE [Concomitant]
     Active Substance: PROMETHAZINE\PROMETHAZINE HYDROCHLORIDE
  5. NEXIUM [Concomitant]
     Active Substance: ESOMEPRAZOLE MAGNESIUM
  6. OXYCONTIN [Concomitant]
     Active Substance: OXYCODONE HYDROCHLORIDE
  7. METOPROLOL [Concomitant]
     Active Substance: METOPROLOL
  8. LAMICTAL [Concomitant]
     Active Substance: LAMOTRIGINE
     Dosage: UNK
  9. OXYCODONE [Concomitant]
     Active Substance: OXYCODONE
  10. CABOZANTINIB [Suspect]
     Active Substance: CABOZANTINIB
     Dosage: 140 MG,QD
     Route: 048
     Dates: end: 20140728
  11. CABOZANTINIB [Suspect]
     Active Substance: CABOZANTINIB
     Dosage: 80 MG, QD
     Route: 048
     Dates: start: 20140729
  12. ZOFRAN [Concomitant]
     Active Substance: ONDANSETRON HYDROCHLORIDE

REACTIONS (8)
  - Nausea [Unknown]
  - Vomiting [Unknown]
  - Enzyme level increased [Unknown]
  - Diarrhoea [Unknown]
  - Decreased appetite [Unknown]
  - Drug-induced liver injury [Unknown]
  - Gallbladder operation [Unknown]
  - Off label use [Unknown]
